FAERS Safety Report 12332835 (Version 1)
Quarter: 2016Q2

REPORT INFORMATION
  Report Type: Spontaneous
  Country: US (occurrence: US)
  Receive Date: 20160504
  Receipt Date: 20160504
  Transmission Date: 20160815
  Serious: Yes (Other)
  Sender: FDA-Public Use
  Company Number: ADR-2015-01198

PATIENT
  Age: 59 Year
  Sex: Female

DRUGS (1)
  1. BACLOFEN. [Suspect]
     Active Substance: BACLOFEN
     Dosage: ^250^
     Route: 037

REACTIONS (5)
  - Pain in extremity [Unknown]
  - Urinary tract infection [Unknown]
  - Drug withdrawal syndrome [Unknown]
  - Pain [Unknown]
  - Muscle spasticity [Unknown]

NARRATIVE: CASE EVENT DATE: 20150616
